FAERS Safety Report 5355938-8 (Version None)
Quarter: 2007Q2

REPORT INFORMATION
  Report Type: 
  Country: None (occurrence: None)
  Receive Date: 20070613
  Receipt Date: 20070607
  Transmission Date: 20071010
  Serious: Yes (Hospitalization)
  Sender: FDA-Public Use
  Company Number: FRWYE610309MAY07

PATIENT
  Age: 68 Year
  Sex: Female

DRUGS (17)
  1. EFFEXOR XR [Suspect]
     Indication: DEPRESSION
     Route: 048
     Dates: start: 20070220, end: 20070323
  2. EFFEXOR XR [Suspect]
     Dosage: 75 MG TOTAL DAILY
     Route: 048
     Dates: start: 20070324, end: 20070329
  3. FOSAVANCE [Concomitant]
     Dosage: UNKNOWN
     Route: 048
  4. LASIX [Concomitant]
     Dosage: 40 MG; FREQUENCY UNSPEC.
     Route: 048
  5. TRIATEC [Concomitant]
     Dosage: 5 MG; FREQUENCY UNSPEC.
     Route: 048
  6. KALEORID [Concomitant]
     Dosage: 1000 MG; FREQUENCY UNSPEC.
     Route: 048
  7. CALCIDOSE [Concomitant]
     Dosage: UNKNOWN
     Route: 048
  8. CORTANCYL [Concomitant]
     Dosage: 5 MG; FREQUENCY UNSPEC.
     Route: 048
  9. PLAQUENIL [Concomitant]
     Dosage: UNKNOWN
     Route: 048
  10. VASTAREL [Concomitant]
     Dosage: 35 MG; FREQUENCY UNSPEC.
     Route: 048
  11. INIPOMP [Concomitant]
     Dosage: 20 MG; FREQUENCY UNSPEC.
     Route: 048
  12. DAFALGAN [Concomitant]
     Dosage: UNKNOWN
  13. GLYCEROL 2.6% [Concomitant]
     Dosage: UNKNOWN
     Route: 003
  14. PARAFFIN SOFT [Concomitant]
     Dosage: UNKNOWN
     Route: 003
  15. PARAFFIN, LIQUID [Concomitant]
     Dosage: UNKNOWN
     Route: 003
  16. DIPROSALIC [Concomitant]
     Dosage: UNKNOWN
     Route: 061
  17. LEVOTHYROXINE SODIUM [Concomitant]
     Dosage: 50 UG; FREQUENCY UNSPEC.
     Route: 048

REACTIONS (14)
  - COMA [None]
  - CONFUSIONAL STATE [None]
  - DYSPNOEA [None]
  - FALL [None]
  - GLASGOW COMA SCALE ABNORMAL [None]
  - HYPERCAPNIA [None]
  - HYPERKALAEMIA [None]
  - HYPERTONIA [None]
  - MIOSIS [None]
  - RESPIRATORY ACIDOSIS [None]
  - SEROTONIN SYNDROME [None]
  - SOMNOLENCE [None]
  - TACHYCARDIA [None]
  - THROMBOCYTOPENIA [None]
